FAERS Safety Report 6417614-X (Version None)
Quarter: 2009Q4

REPORT INFORMATION
  Report Type: 
  Country: None (occurrence: None)
  Receive Date: 20091028
  Receipt Date: 20091023
  Transmission Date: 20100525
  Serious: Yes (Other)
  Sender: FDA-Public Use
  Company Number: GB-ROCHE-664700

PATIENT
  Age: 50 Year
  Sex: Male

DRUGS (4)
  1. XENICAL [Suspect]
     Indication: DRUG USE FOR UNKNOWN INDICATION
     Route: 065
     Dates: start: 20090914
  2. XENICAL [Suspect]
     Route: 065
  3. METFORMIN HCL [Concomitant]
  4. CO-CODAMOL [Concomitant]

REACTIONS (1)
  - SEPSIS [None]
